FAERS Safety Report 24254784 (Version 2)
Quarter: 2024Q3

REPORT INFORMATION
  Report Type: Spontaneous
  Country: JP (occurrence: JP)
  Receive Date: 20240827
  Receipt Date: 20240913
  Transmission Date: 20241017
  Serious: Yes (Other)
  Sender: FERRING
  Company Number: JP-ferring-EVA202401275FERRINGPH

PATIENT

DRUGS (9)
  1. DESMOPRESSIN ACETATE [Suspect]
     Active Substance: DESMOPRESSIN ACETATE
     Indication: Diabetes insipidus
     Dosage: 60 UG, 1 TIME DAILY
     Route: 048
  2. DESMOPRESSIN ACETATE [Suspect]
     Active Substance: DESMOPRESSIN ACETATE
     Dosage: 60 UG, 2 TIMES DAILY
     Route: 048
  3. LEVOTHYROXINE SODIUM [Concomitant]
     Active Substance: LEVOTHYROXINE SODIUM
     Route: 065
  4. EPINASTINE [Concomitant]
     Active Substance: EPINASTINE
     Route: 065
  5. MAGNESIUM OXIDE [Concomitant]
     Active Substance: MAGNESIUM OXIDE
     Route: 065
  6. LACTULOSE [Concomitant]
     Active Substance: LACTULOSE
     Route: 065
  7. DAYVIGO [Concomitant]
     Active Substance: LEMBOREXANT
     Route: 065
  8. FAMOTIDINE [Concomitant]
     Active Substance: FAMOTIDINE
     Route: 065
  9. ENORAS [Concomitant]
     Route: 065

REACTIONS (2)
  - Ependymoma [Recovering/Resolving]
  - Dysphagia [Recovering/Resolving]

NARRATIVE: CASE EVENT DATE: 20240201
